FAERS Safety Report 4271256-3 (Version None)
Quarter: 2004Q1

REPORT INFORMATION
  Report Type: 
  Country: None (occurrence: None)
  Receive Date: 20040114
  Receipt Date: 20040114
  Transmission Date: 20041129
  Serious: Yes (Life-Threatening)
  Sender: FDA-Public Use
  Company Number: None

PATIENT
  Age: 42 Year
  Sex: Female
  Weight: 72.4 kg

DRUGS (5)
  1. DILANTIN [Suspect]
     Indication: CONVULSION
     Dosage: 100 MG
     Dates: start: 20030805, end: 20030831
  2. DILANTIN [Suspect]
     Indication: METASTASES TO CENTRAL NERVOUS SYSTEM
     Dosage: 100 MG
     Dates: start: 20030805, end: 20030831
  3. AMOXICILLIN [Concomitant]
  4. ADRIAMYCIN PFS [Concomitant]
  5. CYTOXAN [Concomitant]

REACTIONS (4)
  - BLISTER [None]
  - NASAL MUCOSAL DISORDER [None]
  - ORAL MUCOSAL ERUPTION [None]
  - RASH [None]
